FAERS Safety Report 17770941 (Version 2)
Quarter: 2020Q2

REPORT INFORMATION
  Report Type: Spontaneous
  Country: CA (occurrence: CA)
  Receive Date: 20200512
  Receipt Date: 20200601
  Transmission Date: 20200714
  Serious: Yes (Other)
  Sender: FDA-Public Use
  Company Number: CA-ROCHE-2591746

PATIENT
  Age: 76 Year
  Sex: Female

DRUGS (77)
  1. ENBREL [Suspect]
     Active Substance: ETANERCEPT
     Route: 065
  2. GOLD [Suspect]
     Active Substance: GOLD
     Indication: RHEUMATOID ARTHRITIS
     Route: 065
  3. HYDROXYCHLOROQUINE [Suspect]
     Active Substance: HYDROXYCHLOROQUINE
     Route: 065
  4. HYDROXYCHLOROQUINE [Suspect]
     Active Substance: HYDROXYCHLOROQUINE
     Route: 065
  5. METHOTREXATE. [Suspect]
     Active Substance: METHOTREXATE
     Indication: RHEUMATOID ARTHRITIS
     Route: 065
  6. ACTEMRA [Suspect]
     Active Substance: TOCILIZUMAB
     Indication: RHEUMATOID ARTHRITIS
     Route: 065
  7. ANAKINRA [Concomitant]
     Active Substance: ANAKINRA
     Route: 065
  8. DESOXIMETASONE. [Concomitant]
     Active Substance: DESOXIMETASONE
     Route: 014
  9. DESOXIMETASONE. [Concomitant]
     Active Substance: DESOXIMETASONE
     Route: 048
  10. DIPHENHYDRAMINE. [Concomitant]
     Active Substance: DIPHENHYDRAMINE
  11. KADIAN [Concomitant]
     Active Substance: MORPHINE SULFATE
  12. LASIX [Concomitant]
     Active Substance: FUROSEMIDE
  13. ACTEMRA [Suspect]
     Active Substance: TOCILIZUMAB
     Indication: RHEUMATOID ARTHRITIS
     Route: 042
  14. ENBREL [Suspect]
     Active Substance: ETANERCEPT
     Route: 065
  15. METHOTREXATE. [Suspect]
     Active Substance: METHOTREXATE
     Route: 065
  16. BENADRYL [Concomitant]
     Active Substance: DIPHENHYDRAMINE HYDROCHLORIDE
  17. DEXMETHASONE [Concomitant]
     Active Substance: DEXAMETHASONE
  18. HYDROMORPHONE [Concomitant]
     Active Substance: HYDROMORPHONE
  19. KENALOG [Concomitant]
     Active Substance: TRIAMCINOLONE ACETONIDE
  20. MORPHINE SULFATE. [Concomitant]
     Active Substance: MORPHINE SULFATE
  21. ORPHENADRINE CITRATE. [Concomitant]
     Active Substance: ORPHENADRINE CITRATE
  22. RESTASIS [Concomitant]
     Active Substance: CYCLOSPORINE
  23. TRIMETHOPRIM. [Concomitant]
     Active Substance: TRIMETHOPRIM
  24. VAGIFEM [Concomitant]
     Active Substance: ESTRADIOL
  25. RITUXIMAB. [Suspect]
     Active Substance: RITUXIMAB
     Indication: PRODUCT USED FOR UNKNOWN INDICATION
     Route: 041
  26. HYDROXYCHLOROQUINE [Suspect]
     Active Substance: HYDROXYCHLOROQUINE
     Route: 065
  27. METHOTREXATE. [Suspect]
     Active Substance: METHOTREXATE
     Route: 065
  28. XELJANZ [Suspect]
     Active Substance: TOFACITINIB CITRATE
     Indication: PRODUCT USED FOR UNKNOWN INDICATION
     Route: 065
  29. DESOXIMETASONE. [Concomitant]
     Active Substance: DESOXIMETASONE
     Route: 030
  30. DILAUDID [Concomitant]
     Active Substance: HYDROMORPHONE HYDROCHLORIDE
  31. DIPHENHYDRAMINE HYDROCHLORIDE. [Concomitant]
     Active Substance: DIPHENHYDRAMINE HYDROCHLORIDE
     Route: 065
  32. REMICADE [Suspect]
     Active Substance: INFLIXIMAB
     Indication: RHEUMATOID ARTHRITIS
     Route: 042
  33. REMICADE [Suspect]
     Active Substance: INFLIXIMAB
     Route: 042
  34. ACETAMINOPHEN. [Concomitant]
     Active Substance: ACETAMINOPHEN
  35. CORTISONE [Concomitant]
     Active Substance: CORTISONE
     Route: 030
  36. DESOXIMETASONE. [Concomitant]
     Active Substance: DESOXIMETASONE
     Route: 030
  37. LEFLUNOMIDE. [Concomitant]
     Active Substance: LEFLUNOMIDE
  38. LOPERAMIDE [Concomitant]
     Active Substance: LOPERAMIDE
  39. PANTOPRAZOLE SODIUM ANHYDROUS [Concomitant]
     Active Substance: PANTOPRAZOLE SODIUM ANHYDROUS
  40. HYDROXYCHLOROQUINE [Suspect]
     Active Substance: HYDROXYCHLOROQUINE
     Route: 065
  41. HYDROXYCHLOROQUINE [Suspect]
     Active Substance: HYDROXYCHLOROQUINE
     Route: 065
  42. ORENCIA [Suspect]
     Active Substance: ABATACEPT
     Indication: RHEUMATOID ARTHRITIS
     Route: 042
  43. ANAKINRA [Concomitant]
     Active Substance: ANAKINRA
     Route: 065
  44. FUROSEMIDE. [Concomitant]
     Active Substance: FUROSEMIDE
  45. NORFLEX [Concomitant]
     Active Substance: ORPHENADRINE CITRATE
  46. ORENCIA [Concomitant]
     Active Substance: ABATACEPT
  47. PANTOPRAZOLE [Concomitant]
     Active Substance: PANTOPRAZOLE
  48. PLANTAGO OVATA [Concomitant]
     Active Substance: HERBALS\PLANTAGO OVATA LEAF
  49. HYDROXYCHLOROQUINE [Suspect]
     Active Substance: HYDROXYCHLOROQUINE
     Route: 065
  50. CODEINE [Concomitant]
     Active Substance: CODEINE
  51. DARIFENACIN HYDROBROMIDE. [Concomitant]
     Active Substance: DARIFENACIN HYDROBROMIDE
     Route: 065
  52. DARIFENACIN HYDROBROMIDE. [Concomitant]
     Active Substance: DARIFENACIN HYDROBROMIDE
     Route: 048
  53. DYCLONE [Concomitant]
     Active Substance: DYCLONINE HYDROCHLORIDE
  54. OXYNEO [Concomitant]
     Active Substance: OXYCODONE
  55. PANTOLOC [PANTOPRAZOLE] [Concomitant]
     Active Substance: PANTOPRAZOLE SODIUM
  56. SYNTHROID [Concomitant]
     Active Substance: LEVOTHYROXINE SODIUM
  57. ENBREL [Suspect]
     Active Substance: ETANERCEPT
     Indication: RHEUMATOID ARTHRITIS
     Route: 065
  58. HUMIRA [Suspect]
     Active Substance: ADALIMUMAB
     Indication: RHEUMATOID ARTHRITIS
     Route: 058
  59. HYDROXYCHLOROQUINE [Suspect]
     Active Substance: HYDROXYCHLOROQUINE
     Indication: RHEUMATOID ARTHRITIS
     Route: 065
  60. METHOTREXATE. [Suspect]
     Active Substance: METHOTREXATE
     Route: 067
  61. ATIVAN [Concomitant]
     Active Substance: LORAZEPAM
     Route: 065
  62. ATIVAN [Concomitant]
     Active Substance: LORAZEPAM
     Route: 065
  63. OMNARIS [Concomitant]
     Active Substance: CICLESONIDE
  64. SODIUM AUROTHIOMALATE [Concomitant]
     Active Substance: GOLD SODIUM THIOMALATE
  65. URISPAS [Concomitant]
     Active Substance: FLAVOXATE HYDROCHLORIDE
  66. ARAVA [Suspect]
     Active Substance: LEFLUNOMIDE
     Indication: RHEUMATOID ARTHRITIS
     Route: 065
  67. ENBREL [Suspect]
     Active Substance: ETANERCEPT
     Route: 058
  68. HUMIRA [Suspect]
     Active Substance: ADALIMUMAB
     Route: 058
  69. METHOTREXATE. [Suspect]
     Active Substance: METHOTREXATE
     Route: 065
  70. METHOTREXATE. [Suspect]
     Active Substance: METHOTREXATE
     Route: 065
  71. PLAQUENIL [Suspect]
     Active Substance: HYDROXYCHLOROQUINE SULFATE
     Indication: RHEUMATOID ARTHRITIS
     Route: 065
  72. SODIUM AUROTHIOMALATE [Suspect]
     Active Substance: GOLD SODIUM THIOMALATE
     Indication: PRODUCT USED FOR UNKNOWN INDICATION
     Route: 030
  73. CORTISONE [Concomitant]
     Active Substance: CORTISONE
     Route: 048
  74. DIPHENHYDRAMINE. [Concomitant]
     Active Substance: DIPHENHYDRAMINE
  75. DILAUDID [Concomitant]
     Active Substance: HYDROMORPHONE HYDROCHLORIDE
  76. ORPHENADRINE [Concomitant]
     Active Substance: ORPHENADRINE
  77. TRIAMCINOLONE ACETONIDE. [Concomitant]
     Active Substance: TRIAMCINOLONE ACETONIDE

REACTIONS (29)
  - Arthralgia [Not Recovered/Not Resolved]
  - Drug ineffective [Unknown]
  - Therapeutic product effect incomplete [Not Recovered/Not Resolved]
  - C-reactive protein increased [Not Recovered/Not Resolved]
  - Fibromyalgia [Not Recovered/Not Resolved]
  - Tenderness [Not Recovered/Not Resolved]
  - Drug hypersensitivity [Not Recovered/Not Resolved]
  - Product use issue [Unknown]
  - Anaemia [Not Recovered/Not Resolved]
  - Joint swelling [Not Recovered/Not Resolved]
  - Leukopenia [Not Recovered/Not Resolved]
  - Synovitis [Not Recovered/Not Resolved]
  - Rheumatoid arthritis [Not Recovered/Not Resolved]
  - Soft tissue disorder [Not Recovered/Not Resolved]
  - Blood cholesterol increased [Not Recovered/Not Resolved]
  - Drug intolerance [Not Recovered/Not Resolved]
  - Pneumonia viral [Not Recovered/Not Resolved]
  - Stomatitis [Not Recovered/Not Resolved]
  - Swelling [Not Recovered/Not Resolved]
  - Soft tissue swelling [Not Recovered/Not Resolved]
  - Contraindicated product administered [Unknown]
  - Infection [Not Recovered/Not Resolved]
  - Peripheral swelling [Not Recovered/Not Resolved]
  - Off label use [Unknown]
  - Arthritis [Not Recovered/Not Resolved]
  - Condition aggravated [Not Recovered/Not Resolved]
  - Herpes zoster [Not Recovered/Not Resolved]
  - Liver function test abnormal [Not Recovered/Not Resolved]
  - Oral pain [Not Recovered/Not Resolved]
